FAERS Safety Report 5514396-0 (Version None)
Quarter: 2007Q4

REPORT INFORMATION
  Report Type: 
  Country: None (occurrence: None)
  Receive Date: 20071113
  Receipt Date: 20070508
  Transmission Date: 20080405
  Serious: No
  Sender: FDA-Public Use
  Company Number: A0650453A

PATIENT
  Age: 55 Year
  Sex: Female

DRUGS (2)
  1. COREG [Suspect]
     Dosage: 3.125MG TWICE PER DAY
     Route: 048
     Dates: end: 20070101
  2. COZAAR [Concomitant]

REACTIONS (4)
  - ARTHRALGIA [None]
  - DRUG INEFFECTIVE [None]
  - FLUID RETENTION [None]
  - HYPOAESTHESIA [None]
